FAERS Safety Report 25096244 (Version 2)
Quarter: 2025Q2

REPORT INFORMATION
  Report Type: Spontaneous
  Country: US (occurrence: US)
  Receive Date: 20250319
  Receipt Date: 20250607
  Transmission Date: 20250716
  Serious: No
  Sender: TEVA
  Company Number: US-TEVA-VS-3276998

PATIENT
  Age: 72 Year
  Sex: Male
  Weight: 61.69 kg

DRUGS (6)
  1. AUSTEDO [Suspect]
     Active Substance: DEUTETRABENAZINE
     Indication: Tardive dyskinesia
     Dosage: WEEK 4 AUSTEDO 6 MG + AUSTEDO 12 MG FOR A TOTAL OF 18 MG BY MOUTH TWICE DAILY
     Route: 048
  2. AUSTEDO [Suspect]
     Active Substance: DEUTETRABENAZINE
     Indication: Tardive dyskinesia
     Dosage: WEEK 3 AUSTEDO 12 MG 1 TABLET BY MOUTH TWICE DAILY X 1 WEEK,
     Route: 048
  3. AUSTEDO [Suspect]
     Active Substance: DEUTETRABENAZINE
     Indication: Tardive dyskinesia
     Dosage: WEEK 1 AUSTEDO 6 MG, 1 TABLET BY MOUTH TWICE DAILY X 1 WEEK
     Route: 048
  4. AUSTEDO [Suspect]
     Active Substance: DEUTETRABENAZINE
     Indication: Tardive dyskinesia
     Dosage: WEEK 2 AUSTEDO 9 MG, 1 TABLET BY MOUTH TWICE DAILY X 1 WEEK
     Route: 048
  5. AUSTEDO [Suspect]
     Active Substance: DEUTETRABENAZINE
     Indication: Tardive dyskinesia
     Route: 065
  6. AUSTEDO [Suspect]
     Active Substance: DEUTETRABENAZINE
     Indication: Tardive dyskinesia
     Route: 048

REACTIONS (4)
  - Product dose omission issue [Unknown]
  - Incorrect dose administered [Unknown]
  - Inability to afford medication [Unknown]
  - Product supply issue [Unknown]

NARRATIVE: CASE EVENT DATE: 20241211
